FAERS Safety Report 12048448 (Version 1)
Quarter: 2016Q1

REPORT INFORMATION
  Report Type: Spontaneous
  Country: CA (occurrence: CA)
  Receive Date: 20160208
  Receipt Date: 20160208
  Transmission Date: 20160526
  Serious: Yes (Death, Hospitalization, Other)
  Sender: FDA-Public Use
  Company Number: CA-SA-2016SA021266

PATIENT
  Age: 74 Year
  Sex: Female

DRUGS (8)
  1. LACTULOSE. [Suspect]
     Active Substance: LACTULOSE
     Indication: CONSTIPATION
     Route: 065
  2. MIRTAZAPINE. [Suspect]
     Active Substance: MIRTAZAPINE
     Indication: MAJOR DEPRESSION
     Dosage: FORM:TABLET ORALLY DISINTEGRATING
     Route: 065
  3. MORPHINE SULFATE. [Suspect]
     Active Substance: MORPHINE SULFATE
     Indication: PAIN
     Route: 065
  4. P32 SODIUM PHOSPHATE [Suspect]
     Active Substance: PHOSPHORUS P-32
     Indication: CONSTIPATION
     Dosage: FREQUENCY:AS REQUIRED
     Route: 054
  5. BISACODYL. [Suspect]
     Active Substance: BISACODYL
     Dosage: FREQUENCY:AS REQUIRED
     Route: 065
  6. DIMENHYDRINATE. [Suspect]
     Active Substance: DIMENHYDRINATE
     Indication: VOMITING
     Route: 065
  7. DOCUSATE SODIUM. [Suspect]
     Active Substance: DOCUSATE SODIUM
     Indication: CONSTIPATION
     Route: 065
  8. FUROSEMIDE. [Suspect]
     Active Substance: FUROSEMIDE
     Indication: OEDEMA PERIPHERAL
     Route: 065

REACTIONS (16)
  - Hypokinesia [Unknown]
  - Sudden death [Fatal]
  - Altered state of consciousness [Unknown]
  - Condition aggravated [Unknown]
  - Delirium [Unknown]
  - Cognitive disorder [Unknown]
  - Intestinal resection [Unknown]
  - Mutism [Unknown]
  - Urinary retention [Unknown]
  - Gastrointestinal sounds abnormal [Unknown]
  - Intestinal obstruction [Unknown]
  - Abnormal behaviour [Unknown]
  - Somnolence [Unknown]
  - Colonic pseudo-obstruction [Unknown]
  - Myocardial infarction [Unknown]
  - Constipation [Unknown]
